FAERS Safety Report 24756035 (Version 1)
Quarter: 2024Q4

REPORT INFORMATION
  Report Type: Report from Study
  Country: PT (occurrence: PT)
  Receive Date: 20241219
  Receipt Date: 20241219
  Transmission Date: 20250115
  Serious: Yes (Other)
  Sender: ABBVIE
  Company Number: PT-ABBVIE-6049643

PATIENT
  Age: 75 Year
  Sex: Female

DRUGS (7)
  1. CARBIDOPA\LEVODOPA [Suspect]
     Active Substance: CARBIDOPA\LEVODOPA
     Indication: Parkinson^s disease
     Dosage: 20 MG + 5 MG; FREQUENCY TEXT: MORN:13CC;MAINT:4.3CC/H;EXTRA:6CC
     Route: 050
     Dates: start: 2024
  2. CARBIDOPA\LEVODOPA [Suspect]
     Active Substance: CARBIDOPA\LEVODOPA
     Dosage: 20 MG + 5 MG; FREQUENCY TEXT: MORN:12CC;MAINT:3.8CC/H;EXTRA:1CC
     Route: 050
     Dates: start: 20221031
  3. AMANTADINE [Concomitant]
     Active Substance: AMANTADINE
     Indication: Product used for unknown indication
     Dosage: 1 TABLET; FORM STRENGTH: 100 MILLIGRAM AT LUNCH BEFORE DUODOPA
     Route: 048
  4. OMEPRAZOLE [Concomitant]
     Active Substance: OMEPRAZOLE
     Indication: Product used for unknown indication
     Dosage: 1 TABLET; FORM STRENGTH: 20 MILLIGRAM; FREQUENCY TEXT: AT FASTING BEFORE DUODOPA
     Route: 048
  5. TAPENTADOL [Concomitant]
     Active Substance: TAPENTADOL
     Indication: Product used for unknown indication
     Dosage: 2 TABLET; FORM STRENGTH: 100 MILLIGRAM; START DATE TEXT: BEFORE DUODOPA
     Route: 048
  6. RIVOTRIL [Concomitant]
     Active Substance: CLONAZEPAM
     Indication: Product used for unknown indication
     Dosage: 1 TABLET; FORM STRENGTH: 0.5 MILLIGRAM; FREQUENCY TEXT: AT BEDTIME; START DATE TEXT: BEFORE DUODOPA
     Route: 048
  7. DONEPEZIL [Concomitant]
     Active Substance: DONEPEZIL
     Indication: Product used for unknown indication
     Dosage: 1 TABLET; FORM STRENGTH: 10 MILLIGRAM; FREQUENCY TEXT: AT DINNER; START DATE TEXT: BEFORE DUODOPA
     Route: 048

REACTIONS (2)
  - Weight decreased [Not Recovered/Not Resolved]
  - Urine odour abnormal [Not Recovered/Not Resolved]

NARRATIVE: CASE EVENT DATE: 20241213
